FAERS Safety Report 8834769 (Version 1)
Quarter: 2012Q4

REPORT INFORMATION
  Report Type: Report from Study
  Country: US (occurrence: US)
  Receive Date: 20121010
  Receipt Date: 20121010
  Transmission Date: 20130627
  Serious: Yes (Hospitalization, Other)
  Sender: FDA-Public Use
  Company Number: US-ROCHE-1141528

PATIENT
  Age: 61 Year
  Sex: Female
  Weight: 76 kg

DRUGS (2)
  1. AVASTIN [Suspect]
     Indication: OVARIAN EPITHELIAL CANCER
     Dosage: Last dose administered prior AE: 19/Sep/2012 dose administered on day 1 and day 15.
     Route: 042
     Dates: start: 20120808
  2. UNSPECIFIED INGREDIENT [Suspect]
     Indication: OVARIAN EPITHELIAL CANCER
     Dosage: Last dose administered prior AE: 29/Sep/2012
     Route: 048
     Dates: start: 20120808

REACTIONS (6)
  - Obstruction gastric [Recovering/Resolving]
  - Abdominal pain [Recovering/Resolving]
  - Constipation [Recovering/Resolving]
  - Abdominal distension [Recovering/Resolving]
  - Nausea [Recovering/Resolving]
  - Vomiting [Recovering/Resolving]
